FAERS Safety Report 8437573-8 (Version None)
Quarter: 2012Q2

REPORT INFORMATION
  Report Type: 
  Country: None (occurrence: None)
  Receive Date: 20120614
  Receipt Date: 20120406
  Transmission Date: 20120825
  Serious: No
  Sender: FDA-Public Use
  Company Number: US-AMGEN-USASP2012022023

PATIENT
  Sex: Female

DRUGS (11)
  1. IRON [Concomitant]
     Dosage: UNK
  2. LEXAPRO [Concomitant]
     Dosage: UNK
  3. FEMARA [Concomitant]
     Dosage: UNK
  4. NIFEDIPINE [Concomitant]
     Dosage: UNK
  5. HYOMAX [Concomitant]
     Dosage: UNK
  6. HYDROXYZINE [Concomitant]
     Dosage: UNK
  7. NEXIUM [Concomitant]
     Dosage: UNK
  8. PROLIA [Suspect]
     Indication: BONE LOSS
     Dosage: UNK
     Dates: start: 20120104
  9. CLARINEX                           /01202601/ [Concomitant]
     Dosage: UNK
  10. DIPHENOXYLATE HCL + ATROPINE SULFATE [Concomitant]
     Dosage: UNK
  11. CALCIUM [Concomitant]
     Dosage: UNK

REACTIONS (2)
  - DIARRHOEA [None]
  - VOMITING [None]
